FAERS Safety Report 15901261 (Version 10)
Quarter: 2020Q3

REPORT INFORMATION
  Report Type: Report from Study
  Country: DK (occurrence: DK)
  Receive Date: 20190201
  Receipt Date: 20190830
  Transmission Date: 20201104
  Serious: Yes (Death, Life-Threatening, Hospitalization, Other)
  Sender: FDA-Public Use
  Company Number: DK-JNJFOC-20190114634

PATIENT
  Age: 80 Year
  Sex: Male
  Weight: 62 kg

DRUGS (28)
  1. IBRUTINIB [Suspect]
     Active Substance: IBRUTINIB
     Indication: CHRONIC LYMPHOCYTIC LEUKAEMIA
     Dosage: DAILY FOR 28 DAYS TILL 30?JAN?2019?MEDICATION KIT NUMBER: 10630
     Route: 048
     Dates: start: 20181120, end: 20190111
  2. ATORVASTATIN [Concomitant]
     Active Substance: ATORVASTATIN
     Indication: MYOCARDIAL ISCHAEMIA
     Route: 065
     Dates: start: 20181212
  3. FLUTICASONE. [Concomitant]
     Active Substance: FLUTICASONE
     Indication: PROPHYLAXIS
     Dosage: 1 DOSE DAILY IN EACH NOSTRIL FOR 120 DAYS
     Route: 045
     Dates: start: 20181001
  4. BETMIGA [Concomitant]
     Active Substance: MIRABEGRON
     Indication: PROPHYLAXIS
     Dosage: DEPOT TABLET, IN THE MORNING
     Route: 048
     Dates: start: 20180324
  5. NITROLINGUAL [Concomitant]
     Active Substance: NITROGLYCERIN
     Indication: MYOCARDIAL ISCHAEMIA
     Dosage: IN THE MORNING
     Route: 060
     Dates: start: 20180323
  6. BICALUTAMIDE. [Concomitant]
     Active Substance: BICALUTAMIDE
     Indication: PROSTATE CANCER
     Dosage: IN THE MORNING
     Route: 048
     Dates: start: 20180611
  7. IMDUR [Concomitant]
     Active Substance: ISOSORBIDE MONONITRATE
     Dosage: DEPOT TABLET, IN THE MORNING
     Route: 048
     Dates: start: 20180324
  8. FRESUBIN [Concomitant]
     Active Substance: AMINO ACIDS\DEXTROSE\ELECTROLYTES NOS\SOYBEAN OIL\VITAMINS
     Dosage: OTHER NUTRITION AGENTS (FRESUBIN) 2 KCAL DRINK
     Route: 048
     Dates: start: 20181213
  9. ISOSORBIDE MONONITRATE. [Concomitant]
     Active Substance: ISOSORBIDE MONONITRATE
     Indication: MYOCARDIAL ISCHAEMIA
     Route: 065
  10. APIXABAN [Concomitant]
     Active Substance: APIXABAN
     Indication: TRANSIENT ISCHAEMIC ATTACK
     Route: 065
  11. RESONIUM [Concomitant]
     Active Substance: SODIUM POLYSTYRENE SULFONATE
     Indication: CEREBRAL HAEMORRHAGE
     Route: 065
  12. ENALAPRIL [Concomitant]
     Active Substance: ENALAPRIL
     Indication: MYOCARDIAL ISCHAEMIA
     Dosage: IN THE MORNING
     Route: 048
     Dates: start: 20180323
  13. ACITRETIN. [Concomitant]
     Active Substance: ACITRETIN
     Indication: PUSTULAR PSORIASIS
     Route: 065
  14. NOVORAPID [Concomitant]
     Active Substance: INSULIN ASPART
     Indication: CEREBRAL HAEMORRHAGE
     Route: 065
  15. DIGOXIN. [Concomitant]
     Active Substance: DIGOXIN
     Indication: ATRIAL FIBRILLATION
     Route: 065
  16. METOPROLOL. [Concomitant]
     Active Substance: METOPROLOL
     Indication: MYOCARDIAL ISCHAEMIA
     Route: 065
  17. ATROPINE. [Concomitant]
     Active Substance: ATROPINE
     Indication: CEREBRAL HAEMORRHAGE
     Route: 065
  18. MACROGOL 3350 [Concomitant]
     Active Substance: POLYETHYLENE GLYCOL 3350
     Indication: PROPHYLAXIS
     Route: 065
  19. PIPERACILLIN/TAZOBACTAM [Concomitant]
     Active Substance: PIPERACILLIN SODIUM\TAZOBACTAM SODIUM
     Indication: CEREBRAL HAEMORRHAGE
     Route: 065
  20. PANODIL [Concomitant]
     Active Substance: ACETAMINOPHEN
     Indication: LUMBAR VERTEBRAL FRACTURE
     Route: 048
     Dates: start: 20181212
  21. MORPHINE [Concomitant]
     Active Substance: MORPHINE
     Indication: CEREBRAL HAEMORRHAGE
     Route: 048
     Dates: start: 20181211
  22. ALLOPURINOL. [Concomitant]
     Active Substance: ALLOPURINOL
     Dosage: IN THE MORNING
     Route: 048
     Dates: start: 20181114
  23. CARBAMAZEPINE. [Concomitant]
     Active Substance: CARBAMAZEPINE
     Indication: EPILEPSY
     Dosage: DEPOT TABLET, IN THE MORNING
     Route: 048
     Dates: start: 20180323
  24. METRONIDAZOLE. [Concomitant]
     Active Substance: METRONIDAZOLE
     Indication: CEREBRAL HAEMORRHAGE
     Route: 065
  25. GANGIDEN [Concomitant]
     Route: 048
     Dates: start: 20181211
  26. ELOCON [Concomitant]
     Active Substance: MOMETASONE FUROATE
     Indication: PUSTULAR PSORIASIS
     Dosage: 1 APPLICATION DAILY
     Route: 003
     Dates: start: 20180927
  27. VENETOCLAX. [Suspect]
     Active Substance: VENETOCLAX
     Indication: CHRONIC LYMPHOCYTIC LEUKAEMIA
     Route: 048
  28. OXYCODONE HYDROCHLORIDE. [Concomitant]
     Active Substance: OXYCODONE HYDROCHLORIDE
     Indication: LUMBAR VERTEBRAL FRACTURE
     Route: 065

REACTIONS (4)
  - Pneumonia [Fatal]
  - Sinus node dysfunction [Fatal]
  - Cardiac failure [Fatal]
  - Infection [Recovered/Resolved]

NARRATIVE: CASE EVENT DATE: 20190109
